FAERS Safety Report 4474450-1 (Version None)
Quarter: 2004Q4

REPORT INFORMATION
  Report Type: 
  Country: None (occurrence: None)
  Receive Date: 20041014
  Receipt Date: 20041006
  Transmission Date: 20050328
  Serious: Yes (Life-Threatening, Hospitalization, Disabling)
  Sender: FDA-Public Use
  Company Number: US-MERCK-0410USA00720

PATIENT
  Age: 81 Year
  Sex: Female

DRUGS (3)
  1. REMICADE [Concomitant]
     Route: 065
  2. PREDNISONE [Concomitant]
     Route: 065
  3. VIOXX [Suspect]
     Indication: RHEUMATOID ARTHRITIS
     Route: 048
     Dates: end: 20040511

REACTIONS (1)
  - CEREBROVASCULAR ACCIDENT [None]
